FAERS Safety Report 7313436-6 (Version None)
Quarter: 2011Q1

REPORT INFORMATION
  Report Type: 
  Country: None (occurrence: None)
  Receive Date: 20110225
  Receipt Date: 20110215
  Transmission Date: 20110831
  Serious: No
  Sender: FDA-Public Use
  Company Number: US-PFIZER INC-2010174103

PATIENT
  Sex: Male
  Weight: 87.5 kg

DRUGS (4)
  1. LYRICA [Suspect]
     Dosage: 425MG PER DAY
     Dates: start: 20100901
  2. LYRICA [Suspect]
     Indication: BURNING SENSATION
     Dosage: 150 MG, 1X/DAY
     Dates: start: 20100101, end: 20100101
  3. LYRICA [Suspect]
     Dosage: 150 MG, 2X/DAY
     Dates: start: 20100101, end: 20100101
  4. LYRICA [Suspect]
     Indication: SURGERY
     Dosage: 75 MG, 2X/DAY
     Route: 048
     Dates: start: 20090101

REACTIONS (5)
  - WEIGHT INCREASED [None]
  - HUNGER [None]
  - BODY FAT DISORDER [None]
  - BLOOD PRESSURE DECREASED [None]
  - PAIN IN EXTREMITY [None]
